FAERS Safety Report 23738896 (Version 1)
Quarter: 2024Q2

REPORT INFORMATION
  Report Type: Spontaneous
  Country: HU (occurrence: HU)
  Receive Date: 20240413
  Receipt Date: 20240413
  Transmission Date: 20240716
  Serious: Yes (Other)
  Sender: FDA-Public Use
  Company Number: HU-002147023-NVSC2024HU075582

PATIENT
  Sex: Female

DRUGS (5)
  1. LETROZOLE [Suspect]
     Active Substance: LETROZOLE
     Indication: Invasive breast carcinoma
     Dosage: UNK
     Route: 065
     Dates: start: 20190129, end: 202307
  2. RIBOCICLIB [Suspect]
     Active Substance: RIBOCICLIB
     Indication: HER2 negative breast cancer
     Dosage: UNK
     Route: 065
     Dates: start: 2023, end: 2023
  3. RIBOCICLIB [Suspect]
     Active Substance: RIBOCICLIB
     Dosage: UNK
     Route: 065
     Dates: start: 202311
  4. FULVESTRANT [Concomitant]
     Active Substance: FULVESTRANT
     Indication: HER2 negative breast cancer
     Dosage: UNK
     Route: 065
     Dates: start: 2023
  5. GOSERELIN [Concomitant]
     Active Substance: GOSERELIN
     Indication: HER2 negative breast cancer
     Dosage: UNK
     Route: 065
     Dates: start: 2023

REACTIONS (10)
  - Metastases to bone [Not Recovered/Not Resolved]
  - Metastases to liver [Recovering/Resolving]
  - Carcinoembryonic antigen [Unknown]
  - Carbohydrate antigen 125 [Not Recovered/Not Resolved]
  - Carbohydrate antigen 15-3 [Recovering/Resolving]
  - Hepatomegaly [Unknown]
  - Bundle branch block [Unknown]
  - Hypokinesia [Unknown]
  - Hypertension [Unknown]
  - Therapy partial responder [Unknown]

NARRATIVE: CASE EVENT DATE: 20230601
